FAERS Safety Report 19234752 (Version 2)
Quarter: 2021Q4

REPORT INFORMATION
  Report Type: Spontaneous
  Country: RU (occurrence: RU)
  Receive Date: 20210509
  Receipt Date: 20211216
  Transmission Date: 20220303
  Serious: Yes (Other)
  Sender: FDA-Public Use
  Company Number: RU-JNJFOC-20210500078

PATIENT
  Age: 34 Year
  Sex: Female
  Weight: 164 kg

DRUGS (13)
  1. SIRTURO [Suspect]
     Active Substance: BEDAQUILINE FUMARATE
     Indication: HIV infection
     Dosage: 400/200 MG
     Route: 048
     Dates: start: 20210220
  2. LINEZOLID [Suspect]
     Active Substance: LINEZOLID
     Indication: HIV infection
     Route: 048
     Dates: start: 20210220, end: 20210510
  3. DELAMANID [Suspect]
     Active Substance: DELAMANID
     Indication: HIV infection
     Route: 048
     Dates: start: 20210306
  4. CLOFAZIMINE [Suspect]
     Active Substance: CLOFAZIMINE
     Indication: HIV infection
     Route: 048
     Dates: start: 20210220
  5. FLUCONAZOLE [Concomitant]
     Active Substance: FLUCONAZOLE
     Indication: HIV infection
     Route: 065
     Dates: start: 20210115
  6. RITONAVIR [Concomitant]
     Active Substance: RITONAVIR
     Route: 065
  7. COTRIMOXAZOLE [Concomitant]
     Active Substance: SULFAMETHOXAZOLE\TRIMETHOPRIM
     Indication: Cerebral toxoplasmosis
     Dosage: 2880 MR
     Route: 042
     Dates: start: 20210409, end: 20210426
  8. LAMIVUDINE [Concomitant]
     Active Substance: LAMIVUDINE
     Route: 048
     Dates: start: 20210115
  9. TENOFOVIR [Concomitant]
     Active Substance: TENOFOVIR
     Route: 048
     Dates: start: 20210115
  10. DOLUTEGRAVIR [Concomitant]
     Active Substance: DOLUTEGRAVIR
     Indication: HIV infection
     Route: 048
     Dates: start: 20210401
  11. LOPINAVIR [Concomitant]
     Active Substance: LOPINAVIR
     Indication: HIV infection
     Route: 065
     Dates: start: 202101
  12. RITONAVIR [Concomitant]
     Active Substance: RITONAVIR
     Indication: HIV infection
     Route: 065
     Dates: start: 202101
  13. CYCLOPHOSPHAMIDE [Concomitant]
     Active Substance: CYCLOPHOSPHAMIDE
     Indication: HIV infection
     Route: 065
     Dates: start: 202101

REACTIONS (3)
  - Platelet count decreased [Recovered/Resolved]
  - Off label use [Unknown]
  - Product use in unapproved indication [Unknown]

NARRATIVE: CASE EVENT DATE: 20210420
